FAERS Safety Report 7496806-5 (Version None)
Quarter: 2011Q2

REPORT INFORMATION
  Report Type: 
  Country: None (occurrence: None)
  Receive Date: 20110523
  Receipt Date: 20110516
  Transmission Date: 20111010
  Serious: Yes (Hospitalization, Congenital Anomaly, Other)
  Sender: FDA-Public Use
  Company Number: US-PFIZER INC-2011105709

PATIENT
  Sex: Male
  Weight: 2.6 kg

DRUGS (10)
  1. EFFEXOR XR [Suspect]
     Dosage: 150 MG, DAILY
     Route: 064
     Dates: start: 20050111
  2. EFFEXOR XR [Suspect]
     Dosage: 150 MG, ALTERNATE DAY
     Route: 064
     Dates: start: 20050101, end: 20050101
  3. KLONOPIN [Concomitant]
     Dosage: 1 MG, 2X/DAY
     Route: 064
  4. HYDRALAZINE [Concomitant]
     Dosage: UNK
     Route: 064
  5. XANAX [Concomitant]
     Indication: PANIC ATTACK
     Dosage: 0.5 MG, 1X/DAY
     Route: 064
  6. TOPROL-XL [Concomitant]
     Dosage: UNK
     Route: 064
  7. EFFEXOR XR [Suspect]
     Indication: PANIC ATTACK
     Dosage: 75 MG, UNK
     Route: 064
     Dates: start: 20040101
  8. EFFEXOR XR [Suspect]
     Dosage: 75 MG, ALTERNATE DAY
     Route: 064
     Dates: start: 20050101, end: 20050101
  9. XANAX [Concomitant]
     Indication: INSOMNIA
     Dosage: 0.5 MG, TWICE A DAY/ AS NEEDED
     Route: 064
  10. BENADRYL [Concomitant]
     Dosage: UNK
     Route: 064

REACTIONS (7)
  - RESPIRATORY DISTRESS [None]
  - PATENT DUCTUS ARTERIOSUS [None]
  - RESPIRATORY SYNCYTIAL VIRUS BRONCHIOLITIS [None]
  - PULMONARY VALVE STENOSIS CONGENITAL [None]
  - HYPOGLYCAEMIA NEONATAL [None]
  - DRUG EXPOSURE DURING PREGNANCY [None]
  - FALLOT'S TETRALOGY [None]
